FAERS Safety Report 6619077-8 (Version None)
Quarter: 2010Q1

REPORT INFORMATION
  Report Type: 
  Country: None (occurrence: None)
  Receive Date: 20100308
  Receipt Date: 20100301
  Transmission Date: 20100710
  Serious: Yes (Hospitalization)
  Sender: FDA-Public Use
  Company Number: AU-GENENTECH-291906

PATIENT
  Sex: Female
  Weight: 74 kg

DRUGS (9)
  1. MABTHERA [Suspect]
     Indication: IDIOPATHIC THROMBOCYTOPENIC PURPURA
     Dosage: 1 G, UNK
     Route: 042
     Dates: start: 20090407
  2. PREDNISOLONE [Suspect]
     Indication: DRUG USE FOR UNKNOWN INDICATION
     Dosage: 37.5 MG, UNK
     Route: 065
     Dates: end: 20090917
  3. PREDNISOLONE [Suspect]
     Dosage: UNK
     Route: 065
     Dates: start: 20090918, end: 20090921
  4. PREDNISOLONE [Suspect]
     Dosage: UNK
     Route: 065
     Dates: start: 20090922
  5. RAMIPRIL [Concomitant]
     Indication: DRUG USE FOR UNKNOWN INDICATION
     Dosage: UNK
     Dates: end: 20090919
  6. NATRILIX [Concomitant]
     Indication: DRUG USE FOR UNKNOWN INDICATION
     Dosage: UNK
     Dates: end: 20090916
  7. NOVOMIX 30 [Concomitant]
     Indication: DRUG USE FOR UNKNOWN INDICATION
     Dosage: UNK
     Dates: end: 20090919
  8. NOVORAPID [Concomitant]
     Indication: DRUG USE FOR UNKNOWN INDICATION
     Dosage: UNK
     Dates: end: 20090919
  9. PANAMAX [Concomitant]
     Indication: DRUG USE FOR UNKNOWN INDICATION
     Dosage: UNK
     Dates: start: 20090915, end: 20090915

REACTIONS (1)
  - PNEUMOCYSTIS JIROVECI PNEUMONIA [None]
